FAERS Safety Report 9636442 (Version 3)
Quarter: 2014Q2

REPORT INFORMATION
  Report Type: Report from Study
  Country: JP (occurrence: JP)
  Receive Date: 20131021
  Receipt Date: 20140411
  Transmission Date: 20141212
  Serious: Yes (Death, Hospitalization)
  Sender: FDA-Public Use
  Company Number: JP-CUBIST PHARMACEUTICAL, INC.-2013CBST000408

PATIENT
  Sex: 0

DRUGS (7)
  1. CUBICIN [Suspect]
     Indication: SEPSIS
     Dosage: 7 MG/KG, ONCE A DAY
     Route: 042
     Dates: start: 20130305, end: 20130324
  2. CUBICIN [Suspect]
     Indication: OFF LABEL USE
  3. MAXIPIME [Suspect]
     Indication: SEPSIS
     Dosage: 1 G, TID
     Route: 042
     Dates: start: 20130313, end: 20130319
  4. FINIBAX [Concomitant]
     Indication: SEPSIS
     Dosage: 0.5 G, TID
     Route: 042
     Dates: start: 20130319, end: 20130324
  5. AMBISOME [Concomitant]
     Indication: SEPSIS
     Dosage: 50 MG, ONCE A DAY
     Route: 042
     Dates: start: 20130319, end: 20130323
  6. MEROPEN                            /01250501/ [Concomitant]
     Indication: SEPSIS
     Dosage: 500 MG, TID
     Route: 042
     Dates: start: 20130303, end: 20130311
  7. ZOSYN [Concomitant]
     Indication: SEPSIS
     Dosage: 4.5 G, TID
     Route: 042
     Dates: start: 20130311, end: 20130313

REACTIONS (6)
  - White blood cell count decreased [Not Recovered/Not Resolved]
  - Sepsis [Fatal]
  - Fungal infection [Not Recovered/Not Resolved]
  - Alanine aminotransferase increased [Not Recovered/Not Resolved]
  - Drug ineffective [Unknown]
  - Overdose [Unknown]
